FAERS Safety Report 21194767 (Version 1)
Quarter: 2022Q3

REPORT INFORMATION
  Report Type: Spontaneous
  Country: CN (occurrence: CN)
  Receive Date: 20220810
  Receipt Date: 20220810
  Transmission Date: 20221027
  Serious: Yes (Other)
  Sender: FDA-Public Use
  Company Number: CN-009507513-2208CHN003783

PATIENT
  Age: 30 Year
  Sex: Female

DRUGS (3)
  1. CILASTATIN SODIUM\IMIPENEM [Suspect]
     Active Substance: CILASTATIN SODIUM\IMIPENEM
     Indication: Anti-infective therapy
     Dosage: 1 G, TID, IV DRIP
     Route: 041
     Dates: start: 20220709, end: 20220710
  2. CILASTATIN SODIUM\IMIPENEM [Suspect]
     Active Substance: CILASTATIN SODIUM\IMIPENEM
     Dosage: 500 MG, Q6H, IV DRIP
     Route: 041
     Dates: start: 20220710, end: 20220710
  3. ACYCLOVIR [Concomitant]
     Active Substance: ACYCLOVIR
     Indication: Antiviral treatment
     Dosage: 250 MH, TID, IV DRIP
     Route: 041
     Dates: start: 20220707, end: 20220710

REACTIONS (11)
  - Unresponsive to stimuli [Recovered/Resolved]
  - Seizure [Recovered/Resolved]
  - Epilepsy [Recovered/Resolved]
  - Unresponsive to stimuli [Recovering/Resolving]
  - Seizure [Recovered/Resolved]
  - Epilepsy [Recovering/Resolving]
  - Trismus [Recovered/Resolved]
  - Muscle twitching [Recovered/Resolved]
  - Urinary incontinence [Recovered/Resolved]
  - Trismus [Recovering/Resolving]
  - Urinary incontinence [Recovering/Resolving]

NARRATIVE: CASE EVENT DATE: 20220709
